FAERS Safety Report 18457805 (Version 3)
Quarter: 2022Q3

REPORT INFORMATION
  Report Type: Spontaneous
  Country: LV (occurrence: LV)
  Receive Date: 20201103
  Receipt Date: 20220704
  Transmission Date: 20221027
  Serious: Yes (Hospitalization, Other)
  Sender: FDA-Public Use
  Company Number: LV-VIIV HEALTHCARE LIMITED-LV2020EME125095

PATIENT
  Age: 32 Year
  Sex: Male

DRUGS (7)
  1. GLECAPREVIR\PIBRENTASVIR [Suspect]
     Active Substance: GLECAPREVIR\PIBRENTASVIR
     Indication: HIV infection
     Route: 048
     Dates: start: 202009, end: 202011
  2. ABACAVIR SULFATE\LAMIVUDINE [Suspect]
     Active Substance: ABACAVIR SULFATE\LAMIVUDINE
     Indication: HIV infection
     Route: 065
     Dates: start: 2015, end: 2018
  3. ABACAVIR SULFATE\DOLUTEGRAVIR SODIUM\LAMIVUDINE [Suspect]
     Active Substance: ABACAVIR SULFATE\DOLUTEGRAVIR SODIUM\LAMIVUDINE
     Indication: HIV infection
     Route: 065
     Dates: start: 2015
  4. ABACAVIR SULFATE\DOLUTEGRAVIR SODIUM\LAMIVUDINE [Suspect]
     Active Substance: ABACAVIR SULFATE\DOLUTEGRAVIR SODIUM\LAMIVUDINE
     Route: 065
     Dates: start: 2018, end: 2019
  5. ATAZANAVIR\RITONAVIR [Suspect]
     Active Substance: ATAZANAVIR\RITONAVIR
     Indication: HIV infection
     Route: 065
  6. DOLUTEGRAVIR SODIUM\RILPIVIRINE HYDROCHLORIDE [Suspect]
     Active Substance: DOLUTEGRAVIR SODIUM\RILPIVIRINE HYDROCHLORIDE
     Indication: HIV infection
     Route: 065
     Dates: start: 202102
  7. RALTEGRAVIR [Suspect]
     Active Substance: RALTEGRAVIR
     Indication: HIV infection
     Route: 065

REACTIONS (11)
  - Hypersplenism [Unknown]
  - Splenomegaly [Unknown]
  - Hepatocellular injury [Unknown]
  - Portal hypertension [Unknown]
  - Hypercoagulation [Unknown]
  - Ascites [Unknown]
  - Hepatic cirrhosis [Unknown]
  - Pancytopenia [Unknown]
  - Hospitalisation [Unknown]
  - Glomerular filtration rate decreased [Unknown]
  - Treatment noncompliance [Unknown]

NARRATIVE: CASE EVENT DATE: 20210501
